FAERS Safety Report 11241226 (Version 1)
Quarter: 2015Q3

REPORT INFORMATION
  Report Type: Spontaneous
  Country: KR (occurrence: KR)
  Receive Date: 20150706
  Receipt Date: 20150706
  Transmission Date: 20151125
  Serious: Yes (Hospitalization)
  Sender: FDA-Public Use
  Company Number: KR-BAYER-2015-364930

PATIENT
  Age: 41 Year
  Sex: Female

DRUGS (1)
  1. CIPROFLOXACIN. [Suspect]
     Active Substance: CIPROFLOXACIN
     Indication: GASTROENTERITIS
     Dosage: 200 MG, BID
     Route: 042

REACTIONS (6)
  - Acute kidney injury [None]
  - Nausea [None]
  - Azotaemia [Recovered/Resolved]
  - Renal tubular necrosis [None]
  - Deafness neurosensory [Not Recovered/Not Resolved]
  - Oliguria [Recovered/Resolved]
